FAERS Safety Report 12316594 (Version 1)
Quarter: 2016Q2

REPORT INFORMATION
  Report Type: Spontaneous
  Country: US (occurrence: US)
  Receive Date: 20160429
  Receipt Date: 20160429
  Transmission Date: 20160815
  Serious: No
  Sender: FDA-Public Use
  Company Number: US-AMGEN-USASP2016053064

PATIENT
  Age: 47 Year
  Sex: Female

DRUGS (11)
  1. TRAMADOL. [Concomitant]
     Active Substance: TRAMADOL
     Dosage: UNK
  2. FOLIC ACID. [Concomitant]
     Active Substance: FOLIC ACID
     Dosage: 0.8 MG, UNK
  3. PLAQUENIL                          /00072602/ [Concomitant]
     Active Substance: HYDROXYCHLOROQUINE DIPHOSPHATE
     Dosage: UNK
  4. PREDNISONE. [Concomitant]
     Active Substance: PREDNISONE
     Dosage: UNK
  5. METHOTREXATE [Concomitant]
     Active Substance: METHOTREXATE
     Dosage: UNK
  6. FOLIC ACID. [Concomitant]
     Active Substance: FOLIC ACID
     Dosage: UNK
  7. DIAZEPAM. [Concomitant]
     Active Substance: DIAZEPAM
     Dosage: UNK
  8. TEMAZEPAM. [Concomitant]
     Active Substance: TEMAZEPAM
     Dosage: UNK
  9. ENBREL [Suspect]
     Active Substance: ETANERCEPT
     Indication: RHEUMATOID ARTHRITIS
     Dosage: 50 MG, QWK
     Route: 058
     Dates: start: 20160414
  10. NAPROXEN. [Concomitant]
     Active Substance: NAPROXEN
     Dosage: UNK
  11. ALEVE [Concomitant]
     Active Substance: NAPROXEN SODIUM
     Dosage: UNK

REACTIONS (2)
  - Injection site swelling [Unknown]
  - Injection site bruising [Unknown]

NARRATIVE: CASE EVENT DATE: 201604
